FAERS Safety Report 21527738 (Version 2)
Quarter: 2022Q4

REPORT INFORMATION
  Report Type: Spontaneous
  Country: US (occurrence: US)
  Receive Date: 20221031
  Receipt Date: 20221031
  Transmission Date: 20230113
  Serious: No
  Sender: FDA-Public Use
  Company Number: US-RECKITT BENCKISER HEALTHCARE INT LIMITED-RB-081771-2022

PATIENT
  Age: 78 Year
  Sex: Male

DRUGS (3)
  1. MUCINEX [Suspect]
     Active Substance: GUAIFENESIN
     Indication: Respiratory tract congestion
     Dosage: 1 DOSAGE FORM
     Route: 048
     Dates: start: 20220108, end: 20220114
  2. MUCINEX [Suspect]
     Active Substance: GUAIFENESIN
     Indication: Nasal congestion
  3. MUCINEX [Suspect]
     Active Substance: GUAIFENESIN
     Indication: Productive cough

REACTIONS (2)
  - Incorrect product administration duration [Recovered/Resolved]
  - Drug ineffective for unapproved indication [Recovered/Resolved]
